FAERS Safety Report 7821133-3 (Version None)
Quarter: 2011Q4

REPORT INFORMATION
  Report Type: 
  Country: None (occurrence: None)
  Receive Date: 20111018
  Receipt Date: 20111013
  Transmission Date: 20120403
  Serious: Yes (Death)
  Sender: FDA-Public Use
  Company Number: TN-SANOFI-AVENTIS-2011SA067841

PATIENT
  Age: 70 Year
  Sex: Female

DRUGS (6)
  1. ATORVASTATIN [Concomitant]
     Route: 048
     Dates: end: 20110706
  2. CAPTOPRIL [Concomitant]
     Route: 048
     Dates: end: 20110706
  3. PLAVIX [Suspect]
     Indication: ACUTE CORONARY SYNDROME
     Route: 048
     Dates: start: 20110606, end: 20110609
  4. PLAVIX [Suspect]
     Indication: CORONARY ARTERIAL STENT INSERTION
     Route: 048
     Dates: start: 20110606, end: 20110609
  5. ASPEGIC 325 [Concomitant]
     Route: 048
     Dates: end: 20110706
  6. HYPOTEN [Concomitant]
     Route: 048
     Dates: end: 20110706

REACTIONS (1)
  - DEATH [None]
